FAERS Safety Report 7738633-7 (Version None)
Quarter: 2011Q3

REPORT INFORMATION
  Report Type: 
  Country: None (occurrence: None)
  Receive Date: 20110908
  Receipt Date: 20110830
  Transmission Date: 20111222
  Serious: Yes (Hospitalization, Other)
  Sender: FDA-Public Use
  Company Number: US-ASTRAZENECA-2011SE51996

PATIENT
  Age: 51 Year
  Sex: Female
  Weight: 117.5 kg

DRUGS (6)
  1. SEROQUEL XR [Suspect]
     Route: 048
  2. LEVOTHYROXINE SODIUM [Concomitant]
     Indication: THYROID DISORDER
     Route: 048
     Dates: start: 20010101
  3. SEROQUEL XR [Suspect]
     Indication: BIPOLAR DISORDER
     Route: 048
     Dates: start: 20090101
  4. SEROQUEL XR [Suspect]
     Route: 048
  5. CYMBALTA [Concomitant]
     Indication: BIPOLAR DISORDER
     Dosage: 90 BID
     Route: 048
     Dates: start: 20100101
  6. LAMICTAL [Concomitant]
     Indication: BIPOLAR DISORDER
     Route: 048
     Dates: start: 20080101

REACTIONS (2)
  - LIP NEOPLASM MALIGNANT STAGE UNSPECIFIED [None]
  - CHRONIC OBSTRUCTIVE PULMONARY DISEASE [None]
